FAERS Safety Report 4900543-8 (Version None)
Quarter: 2006Q1

REPORT INFORMATION
  Report Type: 
  Country: None (occurrence: None)
  Receive Date: 20060127
  Receipt Date: 20051003
  Transmission Date: 20060701
  Serious: Yes (Hospitalization)
  Sender: FDA-Public Use
  Company Number: CLOF-10114

PATIENT
  Age: 26 Year
  Sex: Male
  Weight: 112.1 kg

DRUGS (4)
  1. CLOFARABINE [Suspect]
     Indication: T-CELL LYMPHOMA
     Dosage: 4 MG/M2 QD X 5 IV
     Route: 042
     Dates: start: 20050926, end: 20050930
  2. VALTREX [Concomitant]
  3. FLUCONAZOLE [Concomitant]
  4. ALLOPURINOL [Concomitant]

REACTIONS (1)
  - PLEURAL EFFUSION [None]
